FAERS Safety Report 23392043 (Version 6)
Quarter: 2025Q2

REPORT INFORMATION
  Report Type: Spontaneous
  Country: US (occurrence: US)
  Receive Date: 20240111
  Receipt Date: 20250605
  Transmission Date: 20250716
  Serious: No
  Sender: SANOFI AVENTIS
  Company Number: US-SA-SAC20240110001537

PATIENT
  Age: 36 Year
  Sex: Female

DRUGS (2)
  1. DUPIXENT [Suspect]
     Active Substance: DUPILUMAB
     Indication: Eczema
     Route: 058
     Dates: start: 20240104, end: 20240104
  2. DUPIXENT [Suspect]
     Active Substance: DUPILUMAB
     Indication: Dermatitis atopic
     Dosage: 300 MG, QOW
     Route: 058
     Dates: start: 202401

REACTIONS (13)
  - Muscle tightness [Unknown]
  - Muscle spasms [Unknown]
  - Lacrimation increased [Recovered/Resolved]
  - Lip pruritus [Recovered/Resolved]
  - Butterfly rash [Unknown]
  - Arthralgia [Unknown]
  - Dry eye [Recovered/Resolved]
  - Eczema [Recovering/Resolving]
  - Dermatitis atopic [Recovering/Resolving]
  - Skin warm [Unknown]
  - Dry skin [Unknown]
  - Skin fissures [Unknown]
  - Erythema [Unknown]

NARRATIVE: CASE EVENT DATE: 20240101
